FAERS Safety Report 24367229 (Version 1)
Quarter: 2024Q3

REPORT INFORMATION
  Report Type: Spontaneous
  Country: US (occurrence: US)
  Receive Date: 20240926
  Receipt Date: 20240926
  Transmission Date: 20241016
  Serious: No
  Sender: BRISTOL MYERS SQUIBB
  Company Number: US-BRISTOL-MYERS SQUIBB COMPANY-2024-152210

PATIENT
  Age: 76 Year
  Sex: Female
  Weight: 84 kg

DRUGS (4)
  1. ELIQUIS [Suspect]
     Active Substance: APIXABAN
     Indication: Pulmonary embolism
     Route: 048
     Dates: end: 20240802
  2. ELIQUIS [Suspect]
     Active Substance: APIXABAN
     Route: 048
  3. IBRANCE [Concomitant]
     Active Substance: PALBOCICLIB
     Indication: Breast cancer
     Route: 048
  4. IBRANCE [Concomitant]
     Active Substance: PALBOCICLIB
     Route: 048

REACTIONS (1)
  - Off label use [Unknown]
